FAERS Safety Report 7338168-X (Version None)
Quarter: 2011Q1

REPORT INFORMATION
  Report Type: 
  Country: None (occurrence: None)
  Receive Date: 20110308
  Receipt Date: 20110223
  Transmission Date: 20110831
  Serious: Yes (Other)
  Sender: FDA-Public Use
  Company Number: PHHY2010US85106

PATIENT
  Sex: Female
  Weight: 118 kg

DRUGS (5)
  1. MIACALCIN [Suspect]
     Dosage: 0.09 ML, QD
     Route: 045
     Dates: start: 20070101, end: 20100101
  2. MAGNESIUM [Concomitant]
  3. VITAMIN D [Concomitant]
  4. FOSAMAX [Concomitant]
     Dosage: 1 DF, QW
  5. CALCIUM [Concomitant]

REACTIONS (4)
  - OSTEOPOROSIS [None]
  - OSTEOPENIA [None]
  - BONE DENSITY DECREASED [None]
  - DRUG INEFFECTIVE [None]
